FAERS Safety Report 5386550-2 (Version None)
Quarter: 2007Q3

REPORT INFORMATION
  Report Type: 
  Country: None (occurrence: None)
  Receive Date: 20070713
  Receipt Date: 20070621
  Transmission Date: 20080115
  Serious: Yes (Other)
  Sender: FDA-Public Use
  Company Number: IS-ASTRAZENECA-2007SE01574

PATIENT
  Age: 70 Year
  Sex: Male
  Weight: 68 kg

DRUGS (5)
  1. CRESTOR [Suspect]
     Indication: ARTERIOSCLEROSIS
     Route: 048
     Dates: start: 20050801, end: 20060801
  2. CRESTOR [Suspect]
     Route: 048
     Dates: start: 20060801, end: 20070103
  3. OMNIC [Concomitant]
  4. PROSCAR [Concomitant]
     Dates: start: 20060401, end: 20060801
  5. FINOL [Concomitant]
     Dates: start: 20060801

REACTIONS (7)
  - ARTHRALGIA [None]
  - BONE PAIN [None]
  - ERYTHEMA [None]
  - HEADACHE [None]
  - INFLUENZA LIKE ILLNESS [None]
  - MYALGIA [None]
  - PENILE EXFOLIATION [None]
